FAERS Safety Report 17611663 (Version 1)
Quarter: 2020Q2

REPORT INFORMATION
  Report Type: Spontaneous
  Country: IT (occurrence: IT)
  Receive Date: 20200401
  Receipt Date: 20200401
  Transmission Date: 20200713
  Serious: Yes (Hospitalization, Other)
  Sender: FDA-Public Use
  Company Number: NVSC2020IT089330

PATIENT
  Sex: Male

DRUGS (4)
  1. FOSFOMYCIN [Suspect]
     Active Substance: FOSFOMYCIN
     Indication: KLEBSIELLA INFECTION
     Dosage: UNK
     Route: 065
  2. DAPTOMYCIN. [Suspect]
     Active Substance: DAPTOMYCIN
     Indication: ACINETOBACTER TEST POSITIVE
     Route: 065
  3. COLISTIN [Suspect]
     Active Substance: COLISTIN
     Indication: KLEBSIELLA INFECTION
     Dosage: UNK
     Route: 065
  4. TIGECYCLINE. [Suspect]
     Active Substance: TIGECYCLINE
     Indication: ACINETOBACTER TEST POSITIVE
     Dosage: UNK
     Route: 065

REACTIONS (1)
  - Renal failure [Unknown]
